FAERS Safety Report 9701275 (Version 3)
Quarter: 2015Q3

REPORT INFORMATION
  Report Type: Spontaneous
  Country: US (occurrence: US)
  Receive Date: 20131121
  Receipt Date: 20150803
  Transmission Date: 20151125
  Serious: No
  Sender: FDA-Public Use
  Company Number: US-GILEAD-2008-0016212

PATIENT
  Age: 72 Year
  Sex: Female

DRUGS (11)
  1. LETAIRIS [Suspect]
     Active Substance: AMBRISENTAN
     Indication: PULMONARY ARTERIAL HYPERTENSION
     Route: 048
     Dates: start: 20080325, end: 20080411
  2. VITAMIN C [Concomitant]
     Active Substance: ASCORBIC ACID
  3. FUROSEMIDE. [Concomitant]
     Active Substance: FUROSEMIDE
  4. DIOVAN [Concomitant]
     Active Substance: VALSARTAN
  5. ALBUTEROL. [Concomitant]
     Active Substance: ALBUTEROL
  6. FISH OIL [Concomitant]
     Active Substance: FISH OIL
  7. FOLIC ACID. [Concomitant]
     Active Substance: FOLIC ACID
  8. ERGOCALCIFEROL/NICOTINAMIDE/RETINOL/ASCORBIC ACID/FOLIC ACID/PANTHENOL/RIBOFLAVIN/THIAMINE HYDROCHLO [Concomitant]
  9. CALCIUM [Concomitant]
     Active Substance: CALCIUM
  10. PLAQUENIL [Concomitant]
     Active Substance: HYDROXYCHLOROQUINE SULFATE
  11. ASPIRIN. [Concomitant]
     Active Substance: ASPIRIN

REACTIONS (5)
  - Oropharyngeal pain [None]
  - Headache [None]
  - Constipation [None]
  - Flushing [None]
  - Oedema peripheral [None]

NARRATIVE: CASE EVENT DATE: 20080328
